FAERS Safety Report 8238038-9 (Version None)
Quarter: 2012Q1

REPORT INFORMATION
  Report Type: 
  Country: None (occurrence: None)
  Receive Date: 20120326
  Receipt Date: 20120315
  Transmission Date: 20120608
  Serious: Yes (Hospitalization)
  Sender: FDA-Public Use
  Company Number: 2012SP009704

PATIENT
  Sex: Female

DRUGS (7)
  1. FLUTICASONE FUROATE [Concomitant]
  2. NEXPLANON [Suspect]
     Indication: CONTRACEPTION
     Dates: start: 20120217
  3. NEXPLANON [Suspect]
  4. VENTOLIN [Concomitant]
  5. DESLORATADINE [Concomitant]
  6. SALMETEROL [Concomitant]
  7. SINGULAIR [Concomitant]

REACTIONS (3)
  - PYREXIA [None]
  - INFLUENZA LIKE ILLNESS [None]
  - OXYGEN SATURATION DECREASED [None]
